FAERS Safety Report 5977319-6 (Version None)
Quarter: 2008Q4

REPORT INFORMATION
  Report Type: 
  Country: None (occurrence: None)
  Receive Date: 20081203
  Receipt Date: 20081121
  Transmission Date: 20090506
  Serious: Yes (Hospitalization, Other)
  Sender: FDA-Public Use
  Company Number: PHHY2008JP28199

PATIENT
  Age: 7 Year
  Sex: Female

DRUGS (5)
  1. CYCLOSPORINE [Suspect]
     Indication: APLASTIC ANAEMIA
     Dosage: UNK
     Route: 065
     Dates: start: 20080320
  2. METHYLPREDNISOLONE 16MG TAB [Suspect]
     Indication: APLASTIC ANAEMIA
     Dosage: UNK
     Route: 065
     Dates: start: 20080421
  3. ANTILYMPHOCYTE IMMUNOGLOBULIN (HORSE) [Suspect]
     Indication: APLASTIC ANAEMIA
     Dosage: UNK
     Route: 065
     Dates: start: 20080421
  4. NEUPOGEN [Concomitant]
     Indication: APLASTIC ANAEMIA
  5. ANTIBIOTICS [Concomitant]
     Indication: PNEUMONIA

REACTIONS (9)
  - CEREBRAL HAEMORRHAGE [None]
  - DEPRESSED LEVEL OF CONSCIOUSNESS [None]
  - FUNGAL INFECTION [None]
  - HEADACHE [None]
  - HEMIANOPIA [None]
  - HYPERTENSION [None]
  - RESTLESSNESS [None]
  - REVERSIBLE POSTERIOR LEUKOENCEPHALOPATHY SYNDROME [None]
  - SOMNOLENCE [None]
